FAERS Safety Report 5594763-X (Version None)
Quarter: 2008Q1

REPORT INFORMATION
  Report Type: 
  Country: None (occurrence: None)
  Receive Date: 20080117
  Receipt Date: 20080111
  Transmission Date: 20080703
  Serious: Yes (Death, Hospitalization, Congenital Anomaly)
  Sender: FDA-Public Use
  Company Number: A0620719A

PATIENT
  Sex: Male

DRUGS (5)
  1. PAXIL CR [Suspect]
     Indication: DEPRESSION
     Dosage: 25MG PER DAY
     Dates: start: 20031205, end: 20041101
  2. GLYBURIDE AND METFORMIN HCL [Concomitant]
     Dosage: 2TAB TWICE PER DAY
     Dates: start: 20031219
  3. ACCUPRIL [Concomitant]
     Dosage: 5MG PER DAY
     Dates: start: 20031114
  4. INSULIN [Concomitant]
  5. PRENATAL VITAMINS [Concomitant]

REACTIONS (8)
  - CARDIAC DISORDER [None]
  - CONGENITAL PULMONARY ARTERY ANOMALY [None]
  - CONGENITAL TRACHEOMALACIA [None]
  - DRUG EXPOSURE DURING PREGNANCY [None]
  - HEART DISEASE CONGENITAL [None]
  - MULTIPLE CONGENITAL ABNORMALITIES [None]
  - PULMONARY HYPERTENSION [None]
  - PULMONARY MALFORMATION [None]
